FAERS Safety Report 20050483 (Version 3)
Quarter: 2022Q1

REPORT INFORMATION
  Report Type: Spontaneous
  Country: CN (occurrence: CN)
  Receive Date: 20211109
  Receipt Date: 20220222
  Transmission Date: 20220423
  Serious: Yes (Death, Life-Threatening, Hospitalization, Other)
  Sender: FDA-Public Use
  Company Number: CN-BRISTOL-MYERS SQUIBB COMPANY-BMS-2021-118086

PATIENT

DRUGS (2)
  1. OPDIVO [Suspect]
     Active Substance: NIVOLUMAB
     Indication: Lung neoplasm malignant
     Dosage: 140 MILLIGRAM
     Route: 041
     Dates: start: 202110
  2. YERVOY [Suspect]
     Active Substance: IPILIMUMAB
     Indication: Lung neoplasm malignant
     Dosage: 1 MILLIGRAM/KILOGRAM
     Route: 041
     Dates: start: 202110

REACTIONS (2)
  - Pneumonia [Fatal]
  - Immune-mediated hypophysitis [Fatal]

NARRATIVE: CASE EVENT DATE: 20211101
